FAERS Safety Report 13214269 (Version 1)
Quarter: 2017Q1

REPORT INFORMATION
  Report Type: Report from Study
  Country: US (occurrence: US)
  Receive Date: 20170210
  Receipt Date: 20170210
  Transmission Date: 20170428
  Serious: Yes (Hospitalization, Other)
  Sender: FDA-Public Use
  Company Number: US-009507513-1702USA002121

PATIENT
  Age: 68 Year
  Sex: Male
  Weight: 88.4 kg

DRUGS (10)
  1. CARAFATE [Concomitant]
     Active Substance: SUCRALFATE
     Dosage: 10 ML, QID, STRENGTH: 100 MG/ML
     Route: 048
  2. PEPCID [Concomitant]
     Active Substance: FAMOTIDINE
     Route: 042
  3. TAXOL [Suspect]
     Active Substance: PACLITAXEL
     Indication: OESOPHAGEAL ADENOCARCINOMA
     Dosage: UNK
     Dates: end: 20170125
  4. BACLOFEN. [Concomitant]
     Active Substance: BACLOFEN
     Dosage: 1 TABLET, TID
     Route: 048
  5. KYTRIL [Concomitant]
     Active Substance: GRANISETRON HYDROCHLORIDE
     Dosage: UNK
     Route: 048
  6. PEMBROLIZUMAB. [Suspect]
     Active Substance: PEMBROLIZUMAB
     Indication: OESOPHAGEAL ADENOCARCINOMA
     Dosage: 200 MG, Q3W
     Route: 042
     Dates: start: 20161227, end: 20170117
  7. TAMSULOSIN HYDROCHLORIDE. [Concomitant]
     Active Substance: TAMSULOSIN HYDROCHLORIDE
     Indication: URINARY RETENTION
     Dosage: 1 CAPSULE, ONE TIME DAILY AS NEEDED
  8. BENADRYL [Concomitant]
     Active Substance: DIPHENHYDRAMINE HYDROCHLORIDE
  9. TYLENOL [Concomitant]
     Active Substance: ACETAMINOPHEN
     Indication: PAIN
     Dosage: 2 DF, Q6H
     Route: 048
  10. CARBOPLATIN. [Suspect]
     Active Substance: CARBOPLATIN
     Indication: OESOPHAGEAL ADENOCARCINOMA
     Dosage: UNK
     Dates: end: 20170125

REACTIONS (5)
  - Hypertension [Unknown]
  - Atrioventricular block second degree [Unknown]
  - Hypophysitis [Unknown]
  - Atrioventricular block complete [Unknown]
  - Myocarditis [Unknown]

NARRATIVE: CASE EVENT DATE: 20170202
